FAERS Safety Report 8618289-1 (Version None)
Quarter: 2012Q3

REPORT INFORMATION
  Report Type: 
  Country: None (occurrence: None)
  Receive Date: 20120824
  Receipt Date: 20120815
  Transmission Date: 20120928
  Serious: Yes (Other)
  Sender: FDA-Public Use
  Company Number: DE-BIOGENIDEC-2012BI026293

PATIENT
  Age: 29 Year
  Sex: Female

DRUGS (3)
  1. IBUPROFEN [Concomitant]
     Indication: PRODUCT USED FOR UNKNOWN INDICATION
  2. AVONEX [Suspect]
     Indication: MULTIPLE SCLEROSIS
     Route: 030
     Dates: start: 20100901, end: 20111107
  3. ACETAMINOPHEN [Concomitant]
     Dates: start: 20120426, end: 20120426

REACTIONS (1)
  - PRE-ECLAMPSIA [None]
